FAERS Safety Report 6105323-6 (Version None)
Quarter: 2009Q1

REPORT INFORMATION
  Report Type: 
  Country: None (occurrence: None)
  Receive Date: 20090306
  Receipt Date: 20090223
  Transmission Date: 20090719
  Serious: Yes (Other)
  Sender: FDA-Public Use
  Company Number: JP-AMGEN-US335232

PATIENT
  Sex: Male

DRUGS (4)
  1. NEUPOGEN [Suspect]
     Indication: CHEMOTHERAPY
     Route: 058
     Dates: start: 20070429, end: 20070509
  2. RITUXIMAB [Concomitant]
     Dates: start: 20070320
  3. METHOTREXATE [Concomitant]
     Dates: start: 20070425
  4. ARA-C [Concomitant]
     Dates: start: 20070425

REACTIONS (1)
  - MYELOBLAST COUNT INCREASED [None]
